FAERS Safety Report 6211867-9 (Version None)
Quarter: 2009Q2

REPORT INFORMATION
  Report Type: 
  Country: None (occurrence: None)
  Receive Date: 20090528
  Receipt Date: 20090515
  Transmission Date: 20091009
  Serious: Yes (Other)
  Sender: FDA-Public Use
  Company Number: DE-1169667

PATIENT
  Sex: Female

DRUGS (1)
  1. FLUORESCITE (FLUORESCEIN SODIUM) 10 % INJECTION LOT#160839F SOLUTION F [Suspect]
     Dosage: INTRAVENOUS BOLUS
     Route: 040

REACTIONS (3)
  - ARRHYTHMIA [None]
  - CIRCULATORY COLLAPSE [None]
  - PRODUCT QUALITY ISSUE [None]
